FAERS Safety Report 10142144 (Version 1)
Quarter: 2014Q2

REPORT INFORMATION
  Report Type: Spontaneous
  Country: US (occurrence: US)
  Receive Date: 20140429
  Receipt Date: 20140429
  Transmission Date: 20141212
  Serious: No
  Sender: FDA-Public Use
  Company Number: US-BAXTER-2014BAX018035

PATIENT
  Sex: 0

DRUGS (1)
  1. CLINIMIX? -SULFITE-FREE (AMINO ACID IN DEXTROSE) INJECTIONS [Suspect]
     Indication: PRODUCT USED FOR UNKNOWN INDICATION
     Route: 065

REACTIONS (3)
  - Wrong technique in drug usage process [Unknown]
  - Medication error [Unknown]
  - No adverse event [Recovered/Resolved]
